FAERS Safety Report 21787105 (Version 1)
Quarter: 2022Q4

REPORT INFORMATION
  Report Type: Other
  Country: US (occurrence: None)
  Receive Date: 20221228
  Receipt Date: 20221228
  Transmission Date: 20230112
  Serious: Yes (Other)
  Sender: FDA-Public Use
  Company Number: US-ROCHE-3251369

PATIENT
  Sex: Female

DRUGS (1)
  1. VALGANCICLOVIR [Suspect]
     Active Substance: VALGANCICLOVIR
     Indication: Lung transplant
     Route: 065

REACTIONS (2)
  - Cytomegalovirus infection [Recovered/Resolved]
  - Off label use [Unknown]
